FAERS Safety Report 11415965 (Version 1)
Quarter: 2015Q3

REPORT INFORMATION
  Report Type: Spontaneous
  Country: US (occurrence: None)
  Receive Date: 20150824
  Receipt Date: 20150824
  Transmission Date: 20151125
  Serious: Yes (Life-Threatening, Disabling, Other)
  Sender: FDA-Public Use
  Company Number: None

PATIENT
  Age: 53 Year
  Sex: Female
  Weight: 79.38 kg

DRUGS (3)
  1. HYDROCHLOROTHIAZIDE. [Concomitant]
     Active Substance: HYDROCHLOROTHIAZIDE
  2. HYDROCHLOROTHIAZIDE 25MG UNICHEM [Suspect]
     Active Substance: HYDROCHLOROTHIAZIDE
     Indication: HYPERTENSION
     Route: 048
  3. MULTI-VITAMIN W/O IRON [Concomitant]

REACTIONS (11)
  - Pain [None]
  - Swelling [None]
  - Hypoaesthesia oral [None]
  - Purulent discharge [None]
  - Fear [None]
  - Gingival bleeding [None]
  - Drug administration error [None]
  - Contusion [None]
  - Gingival ulceration [None]
  - Dizziness [None]
  - Musculoskeletal stiffness [None]

NARRATIVE: CASE EVENT DATE: 20150821
